FAERS Safety Report 7913268-1 (Version None)
Quarter: 2011Q4

REPORT INFORMATION
  Report Type: 
  Country: None (occurrence: None)
  Receive Date: 20111114
  Receipt Date: 20111103
  Transmission Date: 20120403
  Serious: Yes (Other)
  Sender: FDA-Public Use
  Company Number: US-ASTRAZENECA-2011SE66948

PATIENT
  Sex: Female
  Weight: 65.7 kg

DRUGS (11)
  1. CRESTOR [Suspect]
     Route: 048
  2. ESTROPIPATE [Concomitant]
     Dosage: 0.5 DF DAILY THREE DAYS A WEEK
  3. PRILOSEC [Suspect]
     Route: 048
  4. MAGIC MOUTHWASH [Concomitant]
     Dosage: ONE TEASPOON SWISH AND SWALLOWED QID
  5. LACTULOSE [Concomitant]
     Dosage: 10G/15MI TWO TABLESPOONS DAILY
     Route: 048
  6. PRILOSEC [Suspect]
     Route: 048
  7. ATIVAN [Concomitant]
  8. SYNTHROID [Concomitant]
     Dosage: 75 MCG ONE TABLET PER DAY FIVE DAYS A WEEK
     Route: 048
  9. DILTIAZEM [Concomitant]
     Route: 048
  10. ATIVAN [Concomitant]
  11. ASPIRIN [Concomitant]
     Route: 048

REACTIONS (25)
  - GASTROOESOPHAGEAL REFLUX DISEASE [None]
  - DYSPHONIA [None]
  - ARTHRITIS [None]
  - IRRITABLE BOWEL SYNDROME [None]
  - HYPOAESTHESIA ORAL [None]
  - HYPERLIPIDAEMIA [None]
  - HYPERTENSION [None]
  - COUGH [None]
  - FIBROCYSTIC BREAST DISEASE [None]
  - TEMPOROMANDIBULAR JOINT SYNDROME [None]
  - BRANCHIAL CYST [None]
  - CONSTIPATION [None]
  - OROPHARYNGEAL PAIN [None]
  - SLEEP DISORDER [None]
  - DRUG INEFFECTIVE [None]
  - OFF LABEL USE [None]
  - ATRIAL FIBRILLATION [None]
  - ANXIETY [None]
  - PALPITATIONS [None]
  - DYSPNOEA [None]
  - DYSPHAGIA [None]
  - HEADACHE [None]
  - HYPOTHYROIDISM [None]
  - TONGUE DISCOLOURATION [None]
  - ORAL DISCOMFORT [None]
